FAERS Safety Report 13255694 (Version 1)
Quarter: 2017Q1

REPORT INFORMATION
  Report Type: Spontaneous
  Country: DE (occurrence: DE)
  Receive Date: 20170221
  Receipt Date: 20170221
  Transmission Date: 20170428
  Serious: Yes (Congenital Anomaly, Other)
  Sender: FDA-Public Use
  Company Number: DE-TEVA-738480GER

PATIENT
  Age: 0 Day
  Sex: Male
  Weight: 2.72 kg

DRUGS (5)
  1. METOHEXAL [Suspect]
     Active Substance: METOPROLOL SUCCINATE
     Route: 064
     Dates: start: 2016, end: 20160913
  2. FOLIO [Concomitant]
     Active Substance: FOLIC ACID
     Indication: PROPHYLAXIS OF NEURAL TUBE DEFECT
     Dosage: .4 MILLIGRAM DAILY;
     Route: 064
  3. MIRTAZAPIN [Suspect]
     Active Substance: MIRTAZAPINE
     Indication: ANXIETY DISORDER
     Dosage: 15 MILLIGRAM DAILY;
     Route: 064
     Dates: start: 20151212, end: 20160913
  4. VENLAFAXINE [Suspect]
     Active Substance: VENLAFAXINE HYDROCHLORIDE
     Indication: ANXIETY DISORDER
     Dosage: 150 MILLIGRAM DAILY;
     Route: 064
     Dates: start: 20151212, end: 20160913
  5. METOHEXAL [Suspect]
     Active Substance: METOPROLOL SUCCINATE
     Indication: HYPERTENSION
     Route: 064
     Dates: start: 20151212, end: 2016

REACTIONS (4)
  - Syndactyly [Not Recovered/Not Resolved]
  - Foetal exposure during pregnancy [Unknown]
  - Small for dates baby [Not Recovered/Not Resolved]
  - Polydactyly [Not Recovered/Not Resolved]

NARRATIVE: CASE EVENT DATE: 20160913
